FAERS Safety Report 4848535-1 (Version None)
Quarter: 2005Q4

REPORT INFORMATION
  Report Type: 
  Country: None (occurrence: None)
  Receive Date: 20051206
  Receipt Date: 20051123
  Transmission Date: 20060501
  Serious: Yes (Hospitalization, Other)
  Sender: FDA-Public Use
  Company Number: 2005149890

PATIENT
  Age: 72 Year
  Sex: Male

DRUGS (9)
  1. GABAPENTIN [Suspect]
     Indication: ILL-DEFINED DISORDER
     Dosage: ORAL
     Route: 048
  2. LIPITOR [Suspect]
     Indication: HYPERCHOLESTEROLAEMIA
  3. LYRICA [Suspect]
     Indication: NEUROPATHY PERIPHERAL
     Dosage: 150 MG (75 MG, 2 IN 1 D),
  4. DIOVAN [Suspect]
     Indication: ILL-DEFINED DISORDER
  5. ASPIRIN [Concomitant]
  6. MAGNESIUM OXIDE (MAGNESIUM OXIDE) [Concomitant]
  7. FLOMAX [Concomitant]
  8. PREVACID [Concomitant]
  9. FERROUS SULFATE TAB [Concomitant]

REACTIONS (24)
  - AORTIC ARTERIOSCLEROSIS [None]
  - AORTIC CALCIFICATION [None]
  - AORTIC DILATATION [None]
  - AORTITIS [None]
  - ATELECTASIS [None]
  - BLADDER DISTENSION [None]
  - DIVERTICULUM INTESTINAL [None]
  - DIZZINESS POSTURAL [None]
  - GASTROOESOPHAGEAL REFLUX DISEASE [None]
  - GLOMERULONEPHRITIS PROLIFERATIVE [None]
  - INCREASED TENDENCY TO BRUISE [None]
  - INFLAMMATION [None]
  - NEUROPATHY PERIPHERAL [None]
  - PANCREATITIS ACUTE [None]
  - PERIPHERAL ARTERY ANEURYSM [None]
  - PERIPHERAL VASCULAR DISORDER [None]
  - PLEURAL EFFUSION [None]
  - PLEURAL FIBROSIS [None]
  - PROSTATE EXAMINATION ABNORMAL [None]
  - PULMONARY GRANULOMA [None]
  - RENAL CYST [None]
  - RENAL FAILURE [None]
  - SCAR [None]
  - SINUSITIS [None]
